FAERS Safety Report 8272886-4 (Version None)
Quarter: 2012Q2

REPORT INFORMATION
  Report Type: 
  Country: None (occurrence: None)
  Receive Date: 20120411
  Receipt Date: 20090108
  Transmission Date: 20120825
  Serious: No
  Sender: FDA-Public Use
  Company Number: 2009BI001049

PATIENT
  Age: 57 Year
  Sex: Female

DRUGS (1)
  1. TYSABRI [Suspect]
     Indication: MULTIPLE SCLEROSIS
     Route: 042
     Dates: start: 20081022

REACTIONS (11)
  - BACK PAIN [None]
  - FATIGUE [None]
  - PAIN IN EXTREMITY [None]
  - ASTHENIA [None]
  - MEMORY IMPAIRMENT [None]
  - FALL [None]
  - SLUGGISHNESS [None]
  - MULTIPLE SCLEROSIS RELAPSE [None]
  - INSOMNIA [None]
  - ARTHRALGIA [None]
  - HEADACHE [None]
